FAERS Safety Report 10224688 (Version 1)
Quarter: 2014Q2

REPORT INFORMATION
  Report Type: Spontaneous
  Country: US (occurrence: US)
  Receive Date: 20140609
  Receipt Date: 20140609
  Transmission Date: 20141212
  Serious: Yes (Life-Threatening, Hospitalization)
  Sender: FDA-Public Use
  Company Number: US-MYLANLABS-2014S1012624

PATIENT
  Age: 2 Week
  Sex: Female

DRUGS (4)
  1. METHYLDOPA [Suspect]
     Indication: GESTATIONAL HYPERTENSION
     Dosage: INCREASED TO 500MG 3X DAILY
     Route: 064
  2. METHYLDOPA [Suspect]
     Indication: GESTATIONAL HYPERTENSION
     Dosage: FROM 30W GESTATION
     Route: 064
  3. AMPICILLIN [Concomitant]
     Route: 065
  4. GENTAMICIN [Concomitant]
     Route: 065

REACTIONS (5)
  - Hypertensive crisis [Recovered/Resolved]
  - Tachycardia [Recovered/Resolved]
  - Cardiac failure acute [Recovered/Resolved]
  - Drug withdrawal syndrome [Recovered/Resolved]
  - Foetal exposure during pregnancy [Recovered/Resolved]
